FAERS Safety Report 5155332-9 (Version None)
Quarter: 2006Q4

REPORT INFORMATION
  Report Type: 
  Country: None (occurrence: None)
  Receive Date: 20061121
  Receipt Date: 20060130
  Transmission Date: 20070319
  Serious: Yes (Hospitalization)
  Sender: FDA-Public Use
  Company Number: US-BRISTOL-MYERS SQUIBB COMPANY-13263546

PATIENT
  Age: 73 Year
  Sex: Female

DRUGS (11)
  1. CARBOPLATIN [Suspect]
     Indication: OVARIAN CANCER
     Route: 042
     Dates: start: 20051130, end: 20051130
  2. PACLITAXEL [Suspect]
     Indication: OVARIAN CANCER
     Route: 042
     Dates: start: 20051130, end: 20051130
  3. LOMOTIL [Concomitant]
     Dates: start: 20051212
  4. LOVENOX [Concomitant]
     Dates: start: 20051209
  5. PROTONIX [Concomitant]
     Dates: start: 20051217
  6. PROMETHAZINE [Concomitant]
     Dates: start: 20051217
  7. METOPROLOL [Concomitant]
     Dates: start: 20051209
  8. XANAX [Concomitant]
     Dates: start: 20051212
  9. AMBIEN [Concomitant]
     Dates: start: 20051210
  10. LASIX [Concomitant]
     Dates: start: 20051207
  11. AMIODARONE HCL [Concomitant]
     Dates: start: 20051209

REACTIONS (5)
  - BACTERAEMIA [None]
  - CLOSTRIDIUM DIFFICILE COLITIS [None]
  - FAILURE TO THRIVE [None]
  - NEUTROPENIA [None]
  - PLEURAL EFFUSION [None]
